FAERS Safety Report 7108680-7 (Version None)
Quarter: 2010Q4

REPORT INFORMATION
  Report Type: 
  Country: None (occurrence: None)
  Receive Date: 20101117
  Receipt Date: 20101110
  Transmission Date: 20110411
  Serious: Yes (Death, Hospitalization)
  Sender: FDA-Public Use
  Company Number: US-ROCHE-741502

PATIENT
  Sex: Male
  Weight: 70.4 kg

DRUGS (13)
  1. BEVACIZUMAB [Suspect]
     Indication: OESOPHAGEAL CANCER METASTATIC
     Route: 065
     Dates: start: 20101019, end: 20101019
  2. DOCETAXEL [Suspect]
     Indication: OESOPHAGEAL CANCER METASTATIC
     Dosage: 1 OFF
     Route: 065
     Dates: start: 20101019, end: 20101026
  3. CISPLATIN [Suspect]
     Indication: OESOPHAGEAL CANCER METASTATIC
     Dosage: 1 OFF
     Route: 065
     Dates: start: 20101019, end: 20101026
  4. IRINOTECAN HCL [Suspect]
     Indication: OESOPHAGEAL CANCER METASTATIC
     Dosage: 1 OFF
     Route: 065
     Dates: start: 20101019, end: 20101026
  5. ASPIRIN [Concomitant]
  6. ATIVAN [Concomitant]
  7. CLARITIN [Concomitant]
  8. FLONASE [Concomitant]
  9. LIPITOR [Concomitant]
  10. NORVASC [Concomitant]
  11. PROAIR (SALBUTAMOL) [Concomitant]
  12. OMEPRAZOLE [Concomitant]
  13. ZOFRAN [Concomitant]

REACTIONS (4)
  - DEHYDRATION [None]
  - DIARRHOEA [None]
  - RENAL FAILURE ACUTE [None]
  - UPPER GASTROINTESTINAL HAEMORRHAGE [None]
